FAERS Safety Report 21994705 (Version 1)
Quarter: 2023Q1

REPORT INFORMATION
  Report Type: Spontaneous
  Country: IT (occurrence: IT)
  Receive Date: 20230215
  Receipt Date: 20230215
  Transmission Date: 20230417
  Serious: Yes (Other)
  Sender: FDA-Public Use
  Company Number: None

PATIENT
  Age: 62 Year
  Sex: Female

DRUGS (2)
  1. TRAZIMERA [Suspect]
     Active Substance: TRASTUZUMAB-QYYP
     Indication: Breast cancer
     Dosage: 300 MG
     Route: 042
  2. PERJETA [Suspect]
     Active Substance: PERTUZUMAB
     Indication: Breast cancer
     Dosage: 300 MG
     Route: 042

REACTIONS (4)
  - Dysentery [Recovering/Resolving]
  - Hyperglycaemia [Recovering/Resolving]
  - Onychoclasis [Recovering/Resolving]
  - Trichorrhexis [Recovering/Resolving]

NARRATIVE: CASE EVENT DATE: 20220301
